FAERS Safety Report 16191402 (Version 3)
Quarter: 2019Q2

REPORT INFORMATION
  Report Type: Spontaneous
  Country: JP (occurrence: JP)
  Receive Date: 20190412
  Receipt Date: 20190510
  Transmission Date: 20190711
  Serious: Yes (Other)
  Sender: FDA-Public Use
  Company Number: JP-ARRAY-2019-05396

PATIENT

DRUGS (4)
  1. MEKTOVI [Suspect]
     Active Substance: BINIMETINIB
     Indication: MALIGNANT MELANOMA
     Dosage: 45 MG
     Route: 048
     Dates: start: 20190401, end: 20190403
  2. MEKTOVI [Suspect]
     Active Substance: BINIMETINIB
     Dosage: 60 MG
     Route: 048
     Dates: start: 20190410
  3. BRAFTOVI [Suspect]
     Active Substance: ENCORAFENIB
     Indication: MALIGNANT MELANOMA
     Dosage: 450 MG
     Route: 048
     Dates: start: 20190401, end: 20190403
  4. BRAFTOVI [Suspect]
     Active Substance: ENCORAFENIB
     Dosage: 300 MG
     Route: 048
     Dates: start: 20190410

REACTIONS (1)
  - Chorioretinopathy [Recovered/Resolved]

NARRATIVE: CASE EVENT DATE: 20190402
